FAERS Safety Report 8187022-2 (Version None)
Quarter: 2012Q1

REPORT INFORMATION
  Report Type: 
  Country: None (occurrence: None)
  Receive Date: 20120306
  Receipt Date: 20120228
  Transmission Date: 20120608
  Serious: Yes (Other)
  Sender: FDA-Public Use
  Company Number: US-PFIZER INC-2012054880

PATIENT
  Sex: Female

DRUGS (1)
  1. TOVIAZ [Suspect]
     Dosage: UNK, 2 OR 3 TIMES PER WEEK
     Route: 048

REACTIONS (4)
  - NOCTURIA [None]
  - INSOMNIA [None]
  - DYSURIA [None]
  - URINARY RETENTION [None]
